FAERS Safety Report 4989564-7 (Version None)
Quarter: 2006Q2

REPORT INFORMATION
  Report Type: 
  Country: None (occurrence: None)
  Receive Date: 20060426
  Receipt Date: 20060417
  Transmission Date: 20061013
  Serious: Yes (Hospitalization, Other)
  Sender: FDA-Public Use
  Company Number: US200604002545

PATIENT
  Age: 68 Year
  Sex: Female

DRUGS (2)
  1. SYMBYAX [Suspect]
     Indication: SCHIZOAFFECTIVE DISORDER
     Dosage: 1 D/F
     Dates: start: 20060403, end: 20060410
  2. STELAZINE [Concomitant]

REACTIONS (5)
  - HEPATIC FAILURE [None]
  - NEUROLEPTIC MALIGNANT SYNDROME [None]
  - RENAL FAILURE [None]
  - SURGERY [None]
  - WHITE BLOOD CELL COUNT INCREASED [None]
